FAERS Safety Report 25073343 (Version 1)
Quarter: 2025Q1

REPORT INFORMATION
  Report Type: Spontaneous
  Country: SA (occurrence: SA)
  Receive Date: 20250313
  Receipt Date: 20250313
  Transmission Date: 20250408
  Serious: Yes (Other)
  Sender: RANBAXY
  Company Number: SA-SUN PHARMACEUTICAL INDUSTRIES LTD-2025RR-499453

PATIENT
  Age: 48 Year
  Sex: Male

DRUGS (8)
  1. FINGOLIMOD [Suspect]
     Active Substance: FINGOLIMOD
     Indication: Relapsing-remitting multiple sclerosis
     Route: 065
  2. CARMUSTINE [Suspect]
     Active Substance: CARMUSTINE
     Indication: Autologous haematopoietic stem cell transplant
     Route: 065
  3. MELPHALAN [Suspect]
     Active Substance: MELPHALAN
     Indication: Autologous haematopoietic stem cell transplant
     Route: 065
  4. MELPHALAN [Suspect]
     Active Substance: MELPHALAN
     Route: 065
  5. NATALIZUMAB [Suspect]
     Active Substance: NATALIZUMAB
     Indication: Relapsing-remitting multiple sclerosis
     Route: 065
  6. ETOPOSIDE [Suspect]
     Active Substance: ETOPOSIDE
     Indication: Autologous haematopoietic stem cell transplant
     Route: 065
  7. ETOPOSIDE [Suspect]
     Active Substance: ETOPOSIDE
  8. CYTARABINE [Suspect]
     Active Substance: CYTARABINE
     Indication: Autologous haematopoietic stem cell transplant
     Route: 065

REACTIONS (4)
  - Urinary tract infection [Recovered/Resolved]
  - Cytomegalovirus infection reactivation [Recovered/Resolved]
  - Epstein-Barr virus infection reactivation [Recovered/Resolved]
  - Condition aggravated [Unknown]
